FAERS Safety Report 5158691-6 (Version None)
Quarter: 2006Q4

REPORT INFORMATION
  Report Type: 
  Country: None (occurrence: None)
  Receive Date: 20061128
  Receipt Date: 20061116
  Transmission Date: 20070319
  Serious: Yes (Other)
  Sender: FDA-Public Use
  Company Number: US-ELI_LILLY_AND_COMPANY-US200611003420

PATIENT
  Sex: Female

DRUGS (3)
  1. CYMBALTA [Suspect]
     Indication: BACK PAIN
     Dosage: 60 MG, DAILY (1/D)
     Dates: start: 20061030, end: 20061105
  2. CYMBALTA [Suspect]
     Dosage: 60 MG, UNK
     Dates: start: 20061106, end: 20061107
  3. HORMONES AND RELATED AGENTS [Concomitant]
     Dosage: UNK, UNK
     Dates: end: 20061101

REACTIONS (5)
  - ABNORMAL BEHAVIOUR [None]
  - HOT FLUSH [None]
  - LOSS OF CONSCIOUSNESS [None]
  - TREATMENT NONCOMPLIANCE [None]
  - UNRESPONSIVE TO STIMULI [None]
